FAERS Safety Report 4876854-1 (Version None)
Quarter: 2005Q4

REPORT INFORMATION
  Report Type: 
  Country: None (occurrence: None)
  Receive Date: 20051206
  Receipt Date: 20050801
  Transmission Date: 20060501
  Serious: No
  Sender: FDA-Public Use
  Company Number: USA0508104260

PATIENT
  Age: 69 Year
  Sex: Female

DRUGS (5)
  1. CYMBALTA [Suspect]
     Indication: NEUROPATHY PERIPHERAL
     Dosage: 60 MG DAY
     Dates: start: 20050730, end: 20050730
  2. CELEBREX [Concomitant]
  3. PREVACID [Concomitant]
  4. ESTRADIOL W /NORETHISTERONE ACETATE [Concomitant]
  5. NEURONTIN [Concomitant]

REACTIONS (5)
  - CHEST DISCOMFORT [None]
  - DIARRHOEA [None]
  - FATIGUE [None]
  - INITIAL INSOMNIA [None]
  - NAUSEA [None]
